FAERS Safety Report 17316958 (Version 2)
Quarter: 2020Q2

REPORT INFORMATION
  Report Type: Spontaneous
  Country: US (occurrence: US)
  Receive Date: 20200124
  Receipt Date: 20200512
  Transmission Date: 20200713
  Serious: Yes (Other)
  Sender: FDA-Public Use
  Company Number: US-ASTRAZENECA-2019SE11128

PATIENT
  Age: 73 Year
  Sex: Female
  Weight: 80.3 kg

DRUGS (30)
  1. FISH OIL [Concomitant]
     Active Substance: FISH OIL
     Indication: CARDIAC DISORDER
     Dosage: 2 CAPS IN THE MORNING AND 2 IN THE EVENING
     Route: 048
     Dates: start: 20140409
  2. PRAVASTATIN SODIUM. [Concomitant]
     Active Substance: PRAVASTATIN SODIUM
     Indication: BLOOD CHOLESTEROL INCREASED
     Dosage: TAKE ONE TABLET DAILY AT BED TIME
     Route: 048
     Dates: start: 20120202
  3. VITAMIN E [Concomitant]
     Active Substance: .ALPHA.-TOCOPHEROL
     Indication: GENERAL PHYSICAL CONDITION NORMAL
     Dosage: 400 UNIT TAKE AS DIRECTED
     Route: 048
     Dates: start: 20140409
  4. CIPRO [Concomitant]
     Active Substance: CIPROFLOXACIN HYDROCHLORIDE
     Indication: INFECTION
     Dates: start: 2007
  5. PRILOSEC OTC [Suspect]
     Active Substance: OMEPRAZOLE MAGNESIUM
     Indication: GASTROOESOPHAGEAL REFLUX DISEASE
     Route: 048
     Dates: start: 20140409
  6. ALLOPURINOL. [Concomitant]
     Active Substance: ALLOPURINOL
     Indication: GOUT
     Dates: start: 2010
  7. CALCIUM [Concomitant]
     Active Substance: CALCIUM
     Indication: BONE DISORDER
     Route: 048
     Dates: start: 20140409
  8. LISINOPRIL. [Concomitant]
     Active Substance: LISINOPRIL
     Indication: CARDIAC FAILURE
     Route: 048
     Dates: start: 20120720
  9. MULTI VITAMIN [Concomitant]
     Active Substance: VITAMINS
     Indication: GENERAL PHYSICAL CONDITION NORMAL
     Dosage: TAKE ONE TABLET DAILY
     Route: 048
     Dates: start: 20140409
  10. DOXYCYCLINE. [Concomitant]
     Active Substance: DOXYCYCLINE
     Indication: INFECTION
     Dates: start: 2010
  11. PRILOSEC OTC [Suspect]
     Active Substance: OMEPRAZOLE MAGNESIUM
     Indication: GASTROOESOPHAGEAL REFLUX DISEASE
     Route: 048
     Dates: start: 2003, end: 2016
  12. ATENOLOL. [Concomitant]
     Active Substance: ATENOLOL
     Indication: CHEST PAIN
     Dates: start: 2007
  13. COLCRYS [Concomitant]
     Active Substance: COLCHICINE
     Indication: GOUT
     Route: 048
     Dates: start: 20120409
  14. ALLOPURINOL. [Concomitant]
     Active Substance: ALLOPURINOL
     Indication: NEPHROLITHIASIS
     Dates: start: 2010
  15. OMEPRAZOLE. [Suspect]
     Active Substance: OMEPRAZOLE
     Indication: GASTROOESOPHAGEAL REFLUX DISEASE
     Route: 065
     Dates: start: 2003, end: 2016
  16. ASPIRIN. [Concomitant]
     Active Substance: ASPIRIN
     Indication: PAIN
     Route: 048
  17. GLUCOSAMINE CHONDR [Concomitant]
     Indication: ARTHRALGIA
     Dosage: TAKE ONE CAPSULE DAILY
     Route: 048
     Dates: start: 20140409
  18. MOEXIPRIL [Concomitant]
     Active Substance: MOEXIPRIL HYDROCHLORIDE
     Indication: HYPERTENSION
     Dates: start: 2008, end: 2016
  19. SULFAMETHOXAZOLE [Concomitant]
     Active Substance: SULFAMETHOXAZOLE
     Indication: INFECTION
     Dates: start: 2008, end: 2016
  20. SPIRONOLACTONE. [Concomitant]
     Active Substance: SPIRONOLACTONE
     Indication: FLUID RETENTION
     Dates: start: 2009
  21. ZANTAC [Concomitant]
     Active Substance: RANITIDINE HYDROCHLORIDE
     Dates: start: 2016
  22. PRILOSEC OTC [Suspect]
     Active Substance: OMEPRAZOLE MAGNESIUM
     Indication: GASTROOESOPHAGEAL REFLUX DISEASE
     Dosage: FOR MULTIPLE YEARS INCLUDING THROUGH APRIL 1, 2017
     Route: 048
  23. ATENOLOL. [Concomitant]
     Active Substance: ATENOLOL
     Indication: HYPERTENSION
     Dates: start: 2007
  24. LISINOPRIL. [Concomitant]
     Active Substance: LISINOPRIL
     Indication: HYPERTENSION
     Route: 048
     Dates: start: 20120720
  25. VITAMIN C [Concomitant]
     Active Substance: ASCORBIC ACID
     Indication: GENERAL PHYSICAL CONDITION NORMAL
     Route: 048
     Dates: start: 20140409
  26. ECONAZOLE. [Concomitant]
     Active Substance: ECONAZOLE NITRATE
     Indication: FUNGAL INFECTION
     Dates: start: 2008
  27. FUROSEMIDE. [Concomitant]
     Active Substance: FUROSEMIDE
     Indication: FLUID RETENTION
     Dates: start: 2007
  28. OXYCODONE [Concomitant]
     Active Substance: OXYCODONE
     Indication: PAIN
     Dates: start: 2007
  29. PREDNISONE. [Concomitant]
     Active Substance: PREDNISONE
     Indication: DRUG ABUSE
     Dates: start: 2008
  30. SPIRONOLACTONE. [Concomitant]
     Active Substance: SPIRONOLACTONE
     Indication: HYPERTENSION
     Dates: start: 2009

REACTIONS (3)
  - Rebound acid hypersecretion [Unknown]
  - Chronic kidney disease [Not Recovered/Not Resolved]
  - Renal failure [Unknown]

NARRATIVE: CASE EVENT DATE: 2011
